FAERS Safety Report 7048295-2 (Version None)
Quarter: 2010Q4

REPORT INFORMATION
  Report Type: 
  Country: None (occurrence: None)
  Receive Date: 20101015
  Receipt Date: 20101006
  Transmission Date: 20110411
  Serious: Yes (Other)
  Sender: FDA-Public Use
  Company Number: US-US-EMD SERONO, INC.-7014765

PATIENT
  Sex: Female
  Weight: 130 kg

DRUGS (4)
  1. REBIF [Suspect]
     Indication: MULTIPLE SCLEROSIS
     Route: 058
     Dates: start: 20100806, end: 20100101
  2. REBIF [Suspect]
     Route: 058
     Dates: start: 20100101, end: 20100101
  3. REBIF [Suspect]
     Route: 058
     Dates: start: 20100101
  4. PERCOCET [Concomitant]

REACTIONS (10)
  - CHILLS [None]
  - CYSTITIS [None]
  - DEPRESSED MOOD [None]
  - DIABETES MELLITUS [None]
  - HEPATIC ENZYME ABNORMAL [None]
  - HYPERHIDROSIS [None]
  - INJECTION SITE PAIN [None]
  - MULTIPLE ALLERGIES [None]
  - SOMNOLENCE [None]
  - TREMOR [None]
